FAERS Safety Report 8140031-1 (Version None)
Quarter: 2012Q1

REPORT INFORMATION
  Report Type: 
  Country: None (occurrence: None)
  Receive Date: 20120215
  Receipt Date: 20120206
  Transmission Date: 20120608
  Serious: Yes (Hospitalization)
  Sender: FDA-Public Use
  Company Number: US-ASTRAZENECA-2012SE08008

PATIENT
  Age: 68 Year
  Sex: Male
  Weight: 66.7 kg

DRUGS (6)
  1. PROAIR HFA [Concomitant]
  2. SYMBICORT [Suspect]
     Indication: CHRONIC OBSTRUCTIVE PULMONARY DISEASE
     Dosage: 160/4.5 MCGS ONE PUFF TWICE DAILY
     Route: 055
  3. AMLODIPINE [Concomitant]
  4. LEVOTHYROXINE SODIUM [Concomitant]
  5. METOPROLOL TARTRATE [Concomitant]
  6. COMBIVENT [Concomitant]

REACTIONS (3)
  - CHRONIC OBSTRUCTIVE PULMONARY DISEASE [None]
  - OFF LABEL USE [None]
  - DRUG DOSE OMISSION [None]
